FAERS Safety Report 7222295-1 (Version None)
Quarter: 2011Q1

REPORT INFORMATION
  Report Type: 
  Country: None (occurrence: None)
  Receive Date: 20110112
  Receipt Date: 20110105
  Transmission Date: 20110831
  Serious: Yes (Hospitalization)
  Sender: FDA-Public Use
  Company Number: JP-ASTRAZENECA-2011SE01071

PATIENT
  Age: 66 Year
  Sex: Female

DRUGS (5)
  1. CRESTOR [Suspect]
     Indication: HYPERCHOLESTEROLAEMIA
     Route: 048
     Dates: start: 20101213
  2. AMLODIPINE [Concomitant]
     Dosage: DOSE UNKNOWN
     Route: 048
  3. BLOPRESS [Concomitant]
     Dosage: DOSE UNKNOWN
     Route: 048
  4. ARTIST [Concomitant]
     Dosage: DOSE UNKNOWN
     Route: 048
     Dates: start: 20101213
  5. PLAVIX [Concomitant]
     Dosage: DOSE UNKNOWN
     Route: 048
     Dates: start: 20101213

REACTIONS (2)
  - HEPATIC FUNCTION ABNORMAL [None]
  - JAUNDICE [None]
